FAERS Safety Report 24002790 (Version 1)
Quarter: 2024Q2

REPORT INFORMATION
  Report Type: Spontaneous
  Country: US (occurrence: US)
  Receive Date: 20240624
  Receipt Date: 20240624
  Transmission Date: 20240716
  Serious: No
  Sender: FDA-Public Use
  Company Number: US-SUN PHARMACEUTICAL INDUSTRIES LTD-2023R1-426525

PATIENT
  Sex: Female

DRUGS (2)
  1. GUAIFENESIN\PSEUDOEPHEDRINE HYDROCHLORIDE [Suspect]
     Active Substance: GUAIFENESIN\PSEUDOEPHEDRINE HYDROCHLORIDE
     Indication: Sinusitis
     Dosage: UNK UNK, BID
     Route: 065
  2. ALLEGRA [Concomitant]
     Active Substance: FEXOFENADINE HYDROCHLORIDE
     Indication: Sinusitis
     Dosage: UNK
     Route: 065

REACTIONS (1)
  - Product use issue [Unknown]
